FAERS Safety Report 23199757 (Version 1)
Quarter: 2023Q4

REPORT INFORMATION
  Report Type: Spontaneous
  Country: US (occurrence: US)
  Receive Date: 20231117
  Receipt Date: 20231117
  Transmission Date: 20240110
  Serious: No
  Sender: FDA-Public Use
  Company Number: US-Stemline Therapeutics, Inc.-2023ST002451

PATIENT
  Age: 54 Year
  Sex: Female

DRUGS (3)
  1. ORSERDU [Suspect]
     Active Substance: ELACESTRANT
     Indication: Product used for unknown indication
     Route: 048
     Dates: start: 20230626
  2. ORSERDU [Suspect]
     Active Substance: ELACESTRANT
     Route: 048
     Dates: start: 20230626
  3. ORSERDU [Suspect]
     Active Substance: ELACESTRANT
     Route: 048
     Dates: start: 20230626

REACTIONS (9)
  - Blood triglycerides increased [Unknown]
  - Fungal infection [Unknown]
  - Fatigue [Unknown]
  - Pain [Unknown]
  - Fatigue [Unknown]
  - Hyperlipidaemia [Unknown]
  - Asthenia [Unknown]
  - Hypersomnia [Unknown]
  - Pain [Unknown]
